FAERS Safety Report 13152435 (Version 1)
Quarter: 2017Q1

REPORT INFORMATION
  Report Type: Report from Study
  Country: None (occurrence: HU)
  Receive Date: 20170125
  Receipt Date: 20170125
  Transmission Date: 20170428
  Serious: Yes (Hospitalization)
  Sender: FDA-Public Use
  Company Number: HU-ABBVIE-17P-076-1852653-00

PATIENT
  Age: 62 Year
  Sex: Male

DRUGS (1)
  1. DUODOPA [Suspect]
     Active Substance: CARBIDOPA\LEVODOPA
     Indication: PRODUCT USED FOR UNKNOWN INDICATION
     Dosage: MORNING DOSE 4ML; CONTINUOUS DOSE 6.2ML/H;EXTRA DOSE 2.5ML
     Route: 050
     Dates: start: 201401

REACTIONS (7)
  - Fall [Not Recovered/Not Resolved]
  - Fall [Unknown]
  - Contusion [Unknown]
  - Hypersexuality [Recovering/Resolving]
  - Contusion [Recovering/Resolving]
  - Fall [Recovered/Resolved]
  - Asthenia [Not Recovered/Not Resolved]

NARRATIVE: CASE EVENT DATE: 2015
